FAERS Safety Report 5695424-9 (Version None)
Quarter: 2008Q2

REPORT INFORMATION
  Report Type: 
  Country: None (occurrence: None)
  Receive Date: 20080403
  Receipt Date: 20080324
  Transmission Date: 20081010
  Serious: No
  Sender: FDA-Public Use
  Company Number: 20084947

PATIENT
  Age: 48 Year
  Sex: Male

DRUGS (1)
  1. LIORESAL [Suspect]
     Indication: MUSCLE SPASTICITY
     Dosage: DAILY, INTRATHECAL
     Route: 037

REACTIONS (6)
  - ATRIAL FIBRILLATION [None]
  - DEVICE RELATED INFECTION [None]
  - DRUG WITHDRAWAL SYNDROME [None]
  - HYPERTENSION [None]
  - MENINGITIS [None]
  - STAPHYLOCOCCAL INFECTION [None]
